FAERS Safety Report 8496433-7 (Version None)
Quarter: 2012Q3

REPORT INFORMATION
  Report Type: 
  Country: None (occurrence: None)
  Receive Date: 20120709
  Receipt Date: 20120627
  Transmission Date: 20120928
  Serious: Yes (Hospitalization)
  Sender: FDA-Public Use
  Company Number: FR-BRISTOL-MYERS SQUIBB COMPANY-16724841

PATIENT
  Age: 66 Year
  Sex: Female

DRUGS (8)
  1. PREDNISONE TAB [Concomitant]
  2. LERCANIDIPINE [Concomitant]
  3. IRBESARTAN [Suspect]
     Route: 048
     Dates: end: 20120511
  4. BISOPROLOL FUMARATE [Suspect]
     Dosage: FILM-COATED SCORED TABLET
     Route: 048
     Dates: end: 20120511
  5. METHOTREXATE [Suspect]
     Dosage: METHOTREXATE BELLON 2.5 MG TABLET
     Route: 048
     Dates: start: 20120419, end: 20120511
  6. INSULATARD NPH HUMAN [Concomitant]
     Dosage: INJECTION
  7. NOVORAPID [Concomitant]
  8. LASIX [Concomitant]

REACTIONS (4)
  - ANAEMIA [None]
  - THROMBOCYTOPENIA [None]
  - LEUKOPENIA [None]
  - RENAL FAILURE [None]
